FAERS Safety Report 24568271 (Version 4)
Quarter: 2025Q2

REPORT INFORMATION
  Report Type: Spontaneous
  Country: JP (occurrence: JP)
  Receive Date: 20241031
  Receipt Date: 20250620
  Transmission Date: 20250717
  Serious: Yes (Hospitalization, Other)
  Sender: ABBVIE
  Company Number: None

PATIENT
  Age: 44 Year
  Sex: Male
  Weight: 63.3 kg

DRUGS (5)
  1. BOTOX [Suspect]
     Active Substance: ONABOTULINUMTOXINA
     Indication: Muscle spasms
     Dosage: 600 IU, QD?FREQUENCY TEXT: EVERY 1 DAY
     Route: 030
     Dates: start: 20240306, end: 20240306
  2. BOTOX [Suspect]
     Active Substance: ONABOTULINUMTOXINA
     Indication: Muscle spasms
     Dosage: 400 INTERNATIONAL UNIT?FREQUENCY TEXT: EVERY 1 DAY
     Route: 030
     Dates: start: 20220315, end: 20220315
  3. BOTOX [Suspect]
     Active Substance: ONABOTULINUMTOXINA
     Indication: Muscle spasms
     Dosage: 500 INTERNATIONAL UNITS, QD?FREQUENCY TEXT: EVERY 1 DAY
     Route: 030
     Dates: start: 20230531, end: 20230531
  4. BOTOX [Suspect]
     Active Substance: ONABOTULINUMTOXINA
     Indication: Muscle spasms
     Dosage: 200 INTERNATIONAL UNITS,?FREQUENCY TEXT: EVERY 1 DAY
     Route: 030
     Dates: start: 20211214, end: 20211214
  5. AMLODIPINE BESYLATE [Concomitant]
     Active Substance: AMLODIPINE BESYLATE
     Indication: Product used for unknown indication
     Route: 048

REACTIONS (2)
  - Diverticulum intestinal haemorrhagic [Recovering/Resolving]
  - Melaena [Recovered/Resolved]

NARRATIVE: CASE EVENT DATE: 20241011
